FAERS Safety Report 7655516-1 (Version None)
Quarter: 2011Q3

REPORT INFORMATION
  Report Type: 
  Country: None (occurrence: None)
  Receive Date: 20110804
  Receipt Date: 20110802
  Transmission Date: 20111222
  Serious: Yes (Life-Threatening, Hospitalization)
  Sender: FDA-Public Use
  Company Number: DE-SANOFI-AVENTIS-2011SA032048

PATIENT
  Age: 52 Year
  Sex: Male
  Weight: 71 kg

DRUGS (7)
  1. IBUPROFEN [Concomitant]
     Indication: RHEUMATOID ARTHRITIS
     Route: 048
     Dates: start: 20021001
  2. ARAVA [Suspect]
     Indication: RHEUMATOID ARTHRITIS
     Route: 048
     Dates: start: 20060201
  3. ETANERCEPT [Suspect]
     Indication: RHEUMATOID ARTHRITIS
     Route: 058
     Dates: start: 20100202, end: 20100818
  4. PREDNISOLONE [Concomitant]
     Route: 048
     Dates: start: 20100501
  5. ETANERCEPT [Suspect]
     Dosage: 50 MG EVERY NINE DAYS
     Route: 058
     Dates: start: 20100923
  6. PREDNISOLONE [Concomitant]
     Indication: RHEUMATOID ARTHRITIS
     Route: 048
     Dates: start: 20000701, end: 20100501
  7. ETANERCEPT [Suspect]
     Dosage: 50 MG EVERY EIGHT DAYS
     Route: 058
     Dates: start: 20100819, end: 20100922

REACTIONS (5)
  - ABSCESS INTESTINAL [None]
  - WHITE BLOOD CELL COUNT INCREASED [None]
  - DIVERTICULITIS [None]
  - ABDOMINAL PAIN UPPER [None]
  - DIVERTICULAR PERFORATION [None]
